FAERS Safety Report 14860098 (Version 1)
Quarter: 2018Q2

REPORT INFORMATION
  Report Type: Spontaneous
  Country: CN (occurrence: CN)
  Receive Date: 20180508
  Receipt Date: 20180508
  Transmission Date: 20180711
  Serious: Yes (Hospitalization, Other)
  Sender: FDA-Public Use
  Company Number: CN-PFIZER INC-2018184475

PATIENT
  Age: 93 Year
  Sex: Male
  Weight: 52 kg

DRUGS (3)
  1. TAINENG [Suspect]
     Active Substance: CILASTATIN SODIUM\IMIPENEM
     Indication: LUNG INFECTION
     Dosage: 0.5 G, 2X/DAY
     Route: 041
     Dates: start: 20180211, end: 20180218
  2. LINEZOLID. [Suspect]
     Active Substance: LINEZOLID
     Indication: LUNG INFECTION
     Dosage: 0.6 G, 2X/DAY
     Route: 041
     Dates: start: 20180211, end: 20180222
  3. SULPERAZON [Suspect]
     Active Substance: CEFOPERAZONE SODIUM\SULBACTAM SODIUM
     Indication: LUNG INFECTION
     Dosage: 2 G, 2X/DAY
     Route: 041
     Dates: start: 20180207, end: 20180210

REACTIONS (12)
  - Petechiae [Recovering/Resolving]
  - Activated partial thromboplastin time prolonged [None]
  - Diarrhoea [Recovering/Resolving]
  - Tachypnoea [Unknown]
  - Mental status changes [Unknown]
  - Decreased appetite [Unknown]
  - International normalised ratio increased [None]
  - Dyspnoea [None]
  - Coagulopathy [Recovered/Resolved]
  - Sputum discoloured [None]
  - Ecchymosis [None]
  - Cough [None]

NARRATIVE: CASE EVENT DATE: 20180211
